FAERS Safety Report 24241749 (Version 3)
Quarter: 2024Q3

REPORT INFORMATION
  Report Type: Report from Study
  Country: US (occurrence: US)
  Receive Date: 20240823
  Receipt Date: 20240925
  Transmission Date: 20241016
  Serious: Yes (Death, Hospitalization)
  Sender: ARDELYX
  Company Number: US-ARDELYX-2024ARDX006299

PATIENT
  Age: 83 Year
  Sex: Male
  Weight: 87.574 kg

DRUGS (1)
  1. XPHOZAH [Suspect]
     Active Substance: TENAPANOR HYDROCHLORIDE
     Indication: Chronic kidney disease
     Dosage: 30 MILLIGRAM, BID
     Route: 048
     Dates: start: 20240620, end: 20240813

REACTIONS (1)
  - Shock haemorrhagic [Fatal]

NARRATIVE: CASE EVENT DATE: 20240813
